FAERS Safety Report 7508751-7 (Version None)
Quarter: 2011Q2

REPORT INFORMATION
  Report Type: 
  Country: None (occurrence: None)
  Receive Date: 20110527
  Receipt Date: 20101214
  Transmission Date: 20111010
  Serious: No
  Sender: FDA-Public Use
  Company Number: A0899713A

PATIENT
  Age: 44 Year
  Sex: Female

DRUGS (5)
  1. WATER PILL [Concomitant]
  2. ADVAIR DISKUS 100/50 [Suspect]
     Route: 055
  3. DAYPRO [Concomitant]
  4. VENTOLIN [Suspect]
     Indication: ASTHMA
     Route: 055
     Dates: start: 19950101
  5. THYROID MEDICATION [Concomitant]
     Route: 048

REACTIONS (2)
  - OTITIS MEDIA [None]
  - COUGH [None]
